FAERS Safety Report 25471670 (Version 1)
Quarter: 2025Q2

REPORT INFORMATION
  Report Type: Other
  Country: CA (occurrence: CA)
  Receive Date: 20250624
  Receipt Date: 20250624
  Transmission Date: 20250716
  Serious: Yes (Hospitalization, Other)
  Sender: LUPIN
  Company Number: CA-LUPIN PHARMACEUTICALS INC.-2025-05118

PATIENT
  Age: 12 Year
  Sex: Male

DRUGS (28)
  1. PROPRANOLOL HYDROCHLORIDE [Suspect]
     Active Substance: PROPRANOLOL HYDROCHLORIDE
     Indication: Tremor
     Dosage: 1 DOSAGE FORM, QD
     Route: 065
  2. PROPRANOLOL HYDROCHLORIDE [Suspect]
     Active Substance: PROPRANOLOL HYDROCHLORIDE
     Dosage: 20 MG, QD
  3. PROPRANOLOL HYDROCHLORIDE [Suspect]
     Active Substance: PROPRANOLOL HYDROCHLORIDE
     Dosage: 30 MILLIGRAM, QD
  4. OCTREOTIDE ACETATE [Suspect]
     Active Substance: OCTREOTIDE ACETATE
     Indication: Growth hormone-producing pituitary tumour
  5. OCTREOTIDE ACETATE [Suspect]
     Active Substance: OCTREOTIDE ACETATE
  6. OCTREOTIDE ACETATE [Suspect]
     Active Substance: OCTREOTIDE ACETATE
  7. OCTREOTIDE ACETATE [Suspect]
     Active Substance: OCTREOTIDE ACETATE
  8. OCTREOTIDE ACETATE [Suspect]
     Active Substance: OCTREOTIDE ACETATE
  9. RISPERIDONE [Suspect]
     Active Substance: RISPERIDONE
     Indication: Product used for unknown indication
     Route: 065
  10. SERTRALINE HYDROCHLORIDE [Suspect]
     Active Substance: SERTRALINE HYDROCHLORIDE
     Indication: Product used for unknown indication
     Route: 065
  11. SOMAVERT [Suspect]
     Active Substance: PEGVISOMANT
     Indication: Product used for unknown indication
     Dosage: 15 MILLIGRAM, QD (POWDER AND SOLVENT FOR SOLUTION FOR INJECTION)
  12. SOMAVERT [Suspect]
     Active Substance: PEGVISOMANT
  13. SOMAVERT [Suspect]
     Active Substance: PEGVISOMANT
     Route: 065
  14. ANDRODERM [Concomitant]
     Active Substance: TESTOSTERONE
     Indication: Product used for unknown indication
     Route: 065
  15. ATOMOXETINE [Concomitant]
     Active Substance: ATOMOXETINE
     Indication: Product used for unknown indication
     Route: 065
  16. CARBAMAZEPINE [Concomitant]
     Active Substance: CARBAMAZEPINE
     Indication: Product used for unknown indication
     Route: 065
  17. CORTEF [Concomitant]
     Active Substance: HYDROCORTISONE
     Indication: Product used for unknown indication
     Route: 065
  18. CORTISONE [Concomitant]
     Active Substance: CORTISONE
     Indication: Product used for unknown indication
     Route: 065
  19. MELATONIN [Concomitant]
     Active Substance: MELATONIN
     Indication: Product used for unknown indication
     Route: 065
  20. MORPHINE SULFATE [Concomitant]
     Active Substance: MORPHINE SULFATE
     Indication: Product used for unknown indication
     Route: 065
  21. PEG 3350 [Concomitant]
     Active Substance: POLYETHYLENE GLYCOL 3350
     Indication: Constipation
     Dosage: 1 DOSAGE FORM, QD
  22. PEGVISOMANT [Concomitant]
     Active Substance: PEGVISOMANT
     Indication: Product used for unknown indication
     Route: 065
  23. PRIMIDONE [Concomitant]
     Active Substance: PRIMIDONE
     Indication: Pituitary tumour
     Dosage: 100 MILLIGRAM, QD, 1 EVERY  1 DAYS
     Route: 065
  24. PRIMIDONE [Concomitant]
     Active Substance: PRIMIDONE
     Indication: Growth hormone deficiency
  25. PRIMIDONE [Concomitant]
     Active Substance: PRIMIDONE
     Indication: Blood growth hormone
  26. STRATTERA [Concomitant]
     Active Substance: ATOMOXETINE HYDROCHLORIDE
     Indication: Product used for unknown indication
     Route: 065
  27. SYNTHROID [Concomitant]
     Active Substance: LEVOTHYROXINE SODIUM
     Indication: Product used for unknown indication
     Route: 065
  28. TESTOSTERONE [Concomitant]
     Active Substance: TESTOSTERONE
     Indication: Product used for unknown indication
     Route: 065

REACTIONS (42)
  - Agitation [Recovered/Resolved]
  - Brain injury [Recovered/Resolved]
  - Breath odour [Recovered/Resolved]
  - Chest pain [Recovered/Resolved]
  - Constipation [Recovered/Resolved]
  - Contusion [Recovered/Resolved]
  - Cough [Recovered/Resolved]
  - Device malfunction [Unknown]
  - Abdominal pain [Recovered/Resolved]
  - Diarrhoea [Recovered/Resolved]
  - Eructation [Recovered/Resolved]
  - Eye movement disorder [Recovered/Resolved]
  - Shunt occlusion [Recovered/Resolved]
  - Fall [Recovered/Resolved]
  - Blood growth hormone increased [Recovered/Resolved]
  - Foot deformity [Recovered/Resolved]
  - Gait disturbance [Recovered/Resolved]
  - Gastric hypomotility [Recovered/Resolved]
  - Growth hormone-producing pituitary tumour [Recovered/Resolved]
  - Helicobacter infection [Recovered/Resolved]
  - Hepatic enzyme increased [Recovered/Resolved]
  - Hepatotoxicity [Recovered/Resolved]
  - Influenza [Recovered/Resolved]
  - Infrequent bowel movements [Recovered/Resolved]
  - Injection site haemorrhage [Recovered/Resolved]
  - Injection site pain [Recovered/Resolved]
  - Insulin-like growth factor increased [Recovered/Resolved]
  - Nausea [Recovered/Resolved]
  - Needle issue [Unknown]
  - Neoplasm progression [Recovered/Resolved]
  - Obsessive-compulsive disorder [Recovered/Resolved]
  - Product use issue [Unknown]
  - Pyrexia [Recovered/Resolved]
  - Seizure [Recovered/Resolved]
  - Shunt malfunction [Recovered/Resolved]
  - Strabismus [Recovered/Resolved]
  - Stress [Recovered/Resolved]
  - Swelling [Recovered/Resolved]
  - Treatment failure [Unknown]
  - Tremor [Recovered/Resolved]
  - Viral diarrhoea [Recovered/Resolved]
  - Vomiting [Recovered/Resolved]
